FAERS Safety Report 18963686 (Version 6)
Quarter: 2021Q2

REPORT INFORMATION
  Report Type: Report from Study
  Country: JP (occurrence: JP)
  Receive Date: 20210303
  Receipt Date: 20210528
  Transmission Date: 20210717
  Serious: Yes (Other)
  Sender: FDA-Public Use
  Company Number: JP-BRISTOL-MYERS SQUIBB COMPANY-BMS-2021-008090

PATIENT
  Age: 87 Year
  Sex: Male
  Weight: 58.2 kg

DRUGS (20)
  1. NIVOLUMAB [Suspect]
     Active Substance: NIVOLUMAB
     Dosage: 240 MILLIGRAM, ONE TIME DOSE
     Route: 041
     Dates: start: 20200813, end: 20200813
  2. NIVOLUMAB [Suspect]
     Active Substance: NIVOLUMAB
     Dosage: 240 MILLIGRAM, ONE TIME DOSE
     Route: 041
     Dates: start: 20201008, end: 20201008
  3. IPILIMUMAB [Suspect]
     Active Substance: IPILIMUMAB
     Dosage: 1 MILLIGRAM/KILOGRAM, ONE TIME DOSE
     Route: 041
     Dates: start: 20200305, end: 20200305
  4. NIVOLUMAB [Suspect]
     Active Substance: NIVOLUMAB
     Dosage: 240 MILLIGRAM, ONE TIME DOSE
     Route: 041
     Dates: start: 20200430, end: 20200430
  5. NIVOLUMAB [Suspect]
     Active Substance: NIVOLUMAB
     Dosage: 240 MILLIGRAM, ONE TIME DOSE
     Route: 041
     Dates: start: 20201126, end: 20201126
  6. NIVOLUMAB [Suspect]
     Active Substance: NIVOLUMAB
     Indication: RENAL CELL CARCINOMA
     Dosage: 240 MILLIGRAM, ONE TIME DOSE
     Route: 041
     Dates: start: 20200213, end: 20200213
  7. NIVOLUMAB [Suspect]
     Active Substance: NIVOLUMAB
     Dosage: 240 MILLIGRAM, ONE TIME DOSE
     Route: 041
     Dates: start: 20200514, end: 20200514
  8. NIVOLUMAB [Suspect]
     Active Substance: NIVOLUMAB
     Dosage: 240 MILLIGRAM, ONE TIME DOSE
     Route: 041
     Dates: start: 20200709, end: 20200709
  9. NIVOLUMAB [Suspect]
     Active Substance: NIVOLUMAB
     Dosage: 240 MILLIGRAM, ONE TIME DOSE
     Route: 041
     Dates: start: 20200910, end: 20200910
  10. NIVOLUMAB [Suspect]
     Active Substance: NIVOLUMAB
     Dosage: 480 MILLIGRAM, ONE TIME DOSE
     Route: 041
     Dates: start: 20201224, end: 20201224
  11. NIVOLUMAB [Suspect]
     Active Substance: NIVOLUMAB
     Dosage: 240 MILLIGRAM, ONE TIME DOSE
     Route: 041
     Dates: start: 20200305, end: 20200305
  12. IPILIMUMAB [Suspect]
     Active Substance: IPILIMUMAB
     Indication: RENAL CELL CARCINOMA
     Dosage: 1 MILLIGRAM/KILOGRAM, ONE TIME DOSE
     Route: 041
     Dates: start: 20200213, end: 20200213
  13. NIVOLUMAB [Suspect]
     Active Substance: NIVOLUMAB
     Dosage: 240 MILLIGRAM, ONE TIME DOSE
     Route: 041
     Dates: start: 20200625, end: 20200625
  14. NIVOLUMAB [Suspect]
     Active Substance: NIVOLUMAB
     Dosage: 480 MILLIGRAM, ONE TIME DOSE
     Route: 041
     Dates: start: 20210121, end: 20210121
  15. IPILIMUMAB [Suspect]
     Active Substance: IPILIMUMAB
     Dosage: 1 MILLIGRAM/KILOGRAM, ONE TIME DOSE
     Route: 041
     Dates: start: 20200326, end: 20200326
  16. NIVOLUMAB [Suspect]
     Active Substance: NIVOLUMAB
     Dosage: 240 MILLIGRAM, ONE TIME DOSE
     Route: 041
     Dates: start: 20200827, end: 20200827
  17. NIVOLUMAB [Suspect]
     Active Substance: NIVOLUMAB
     Dosage: 240 MILLIGRAM, ONE TIME DOSE
     Route: 041
     Dates: start: 20200730, end: 20200730
  18. NIVOLUMAB [Suspect]
     Active Substance: NIVOLUMAB
     Dosage: 240 MILLIGRAM, ONE TIME DOSE
     Route: 041
     Dates: start: 20200326, end: 20200326
  19. NIVOLUMAB [Suspect]
     Active Substance: NIVOLUMAB
     Dosage: 240 MILLIGRAM, ONE TIME DOSE
     Route: 041
     Dates: start: 20200611, end: 20200611
  20. NIVOLUMAB [Suspect]
     Active Substance: NIVOLUMAB
     Dosage: 240 MILLIGRAM, ONE TIME DOSE
     Route: 041
     Dates: start: 20200924, end: 20200924

REACTIONS (8)
  - Blood creatinine increased [Recovered/Resolved]
  - Nephrosclerosis [Unknown]
  - Drug eruption [Not Recovered/Not Resolved]
  - Renal disorder [Unknown]
  - Pneumonia [Recovered/Resolved]
  - Sinusitis [Not Recovered/Not Resolved]
  - Malaise [Recovered/Resolved]
  - Pyrexia [Recovered/Resolved]

NARRATIVE: CASE EVENT DATE: 20200225
